FAERS Safety Report 11776650 (Version 2)
Quarter: 2015Q4

REPORT INFORMATION
  Report Type: Spontaneous
  Country: JP (occurrence: JP)
  Receive Date: 20151125
  Receipt Date: 20151230
  Transmission Date: 20160304
  Serious: Yes (Hospitalization, Other)
  Sender: FDA-Public Use
  Company Number: JP-ROCHE-1667297

PATIENT
  Sex: Female

DRUGS (2)
  1. AVASTIN [Suspect]
     Active Substance: BEVACIZUMAB
     Indication: OVARIAN CANCER
     Route: 041
  2. DOXORUBICIN HYDROCHLORIDE. [Suspect]
     Active Substance: DOXORUBICIN HYDROCHLORIDE
     Indication: OVARIAN CANCER
     Dosage: THREE TIMES, FRACTIONATION DOSE UNCERTAIN FREQUENCIES, AND DOSE INTERVAL UNCERTAINTIES
     Route: 041

REACTIONS (3)
  - Renal failure [Unknown]
  - Cardiac tamponade [Recovering/Resolving]
  - Circulatory collapse [Unknown]
